FAERS Safety Report 15343552 (Version 2)
Quarter: 2018Q4

REPORT INFORMATION
  Report Type: Spontaneous
  Country: US (occurrence: US)
  Receive Date: 20180903
  Receipt Date: 20181001
  Transmission Date: 20190204
  Serious: No
  Sender: FDA-Public Use
  Company Number: US-PFIZER INC-2018350535

PATIENT
  Age: 64 Year
  Sex: Female
  Weight: 64 kg

DRUGS (1)
  1. XELJANZ XR [Suspect]
     Active Substance: TOFACITINIB CITRATE
     Indication: RHEUMATOID ARTHRITIS
     Dosage: 11 MG, DAILY
     Route: 048
     Dates: start: 201806

REACTIONS (6)
  - Condition aggravated [Unknown]
  - Headache [Unknown]
  - Dizziness [Unknown]
  - Pain [Unknown]
  - Fall [Unknown]
  - Asthenia [Unknown]

NARRATIVE: CASE EVENT DATE: 2018
